FAERS Safety Report 4960202-2 (Version None)
Quarter: 2006Q1

REPORT INFORMATION
  Report Type: 
  Country: None (occurrence: None)
  Receive Date: 20060328
  Receipt Date: 20060313
  Transmission Date: 20060701
  Serious: Yes (Other)
  Sender: FDA-Public Use
  Company Number: 2006035319

PATIENT
  Sex: Male
  Weight: 114.76 kg

DRUGS (3)
  1. VIAGRA [Suspect]
     Indication: ERECTILE DYSFUNCTION
     Dosage: 100 MG (100 MG, AS NECESSARY)
  2. ANTIHYPERTENSIVES         (ANTIHYPERTENSIVES) [Concomitant]
  3. CHOLESTEROL (CHOLESTEROL) [Concomitant]

REACTIONS (2)
  - KNEE ARTHROPLASTY [None]
  - THERAPEUTIC RESPONSE DECREASED [None]
